FAERS Safety Report 6593782-4 (Version None)
Quarter: 2010Q1

REPORT INFORMATION
  Report Type: 
  Country: None (occurrence: None)
  Receive Date: 20100212
  Receipt Date: 20100127
  Transmission Date: 20100710
  Serious: Yes (Life-Threatening, Hospitalization)
  Sender: FDA-Public Use
  Company Number: 2009030069

PATIENT
  Age: 77 Year
  Sex: Male
  Weight: 83 kg

DRUGS (9)
  1. TORSEMIDE [Suspect]
     Indication: RENAL IMPAIRMENT
     Dosage: 20 MG (20 MG, 1 IN 1 D), ORAL
     Route: 048
     Dates: start: 20090125
  2. ARCOXIA [Suspect]
     Indication: PAIN IN EXTREMITY
     Dosage: 90 MG (90 MG, 1 IN 1 D), ORAL
     Route: 048
     Dates: start: 20090123, end: 20090130
  3. GABAPENTIN [Suspect]
     Indication: ARTERIAL OCCLUSIVE DISEASE
     Dosage: 600 MG (300 MG, 2 IN 1 D), ORAL
     Route: 048
     Dates: start: 20090103, end: 20090130
  4. BENZBROMARONE AL (BENZBROMARONE) [Suspect]
     Indication: GOUT
     Dosage: 100 MG (100 MG, 1 IN 1 D), ORAL
     Route: 048
     Dates: start: 20090103, end: 20090130
  5. METOPROLOL TARTRATE [Suspect]
     Indication: HYPERTENSION
     Dosage: 47.5 MG (47.5MG, 1 IN 1 D), ORAL
     Route: 048
     Dates: start: 19950101, end: 20090130
  6. BENAZEPRIL HYDROCHLORIDE (BENAZEPRIL HCL) [Suspect]
     Indication: HYPERTENSION
     Dosage: 1 DOSAGE FORMS (1 DOSAGE FORMS, 1 IN 1 D), ORAL
     Route: 048
     Dates: start: 20080501, end: 20090130
  7. DIGITOXIN INJ [Suspect]
     Indication: ATRIAL FIBRILLATION
     Dosage: 0.07 MG (0.7 MG, 1 IN 1 D), ORAL
     Route: 048
     Dates: start: 20070401, end: 20090129
  8. SPIRONOLACTONE [Suspect]
     Indication: OEDEMA PERIPHERAL
     Dosage: 25 MG (25 MG, 1 IN 1 D), ORAL
     Route: 048
     Dates: start: 20081201, end: 20090129
  9. XIPAMIDE (XIPAMIDE) [Suspect]
     Indication: HYPERTENSION
     Dosage: 40 MG (40 MG, 1 IN 1 D), ORAL
     Route: 048
     Dates: start: 20081201, end: 20090129

REACTIONS (29)
  - ACTIVATED PARTIAL THROMBOPLASTIN TIME PROLONGED [None]
  - AMNESIA [None]
  - ATRIAL FIBRILLATION [None]
  - BENIGN PROSTATIC HYPERPLASIA [None]
  - BLOOD CALCIUM INCREASED [None]
  - BLOOD SODIUM DECREASED [None]
  - BRADYCARDIA [None]
  - BUNDLE BRANCH BLOCK [None]
  - CARDIOVASCULAR DISORDER [None]
  - CHOLELITHIASIS [None]
  - CONDITION AGGRAVATED [None]
  - DIALYSIS [None]
  - DIARRHOEA [None]
  - DRUG INTERACTION [None]
  - GOUT [None]
  - HAEMOGLOBIN DECREASED [None]
  - HEART RATE INCREASED [None]
  - HYPERKALAEMIA [None]
  - HYPOPERFUSION [None]
  - HYPOTONIA [None]
  - INTERNATIONAL NORMALISED RATIO INCREASED [None]
  - LEFT ATRIAL DILATATION [None]
  - LOSS OF CONSCIOUSNESS [None]
  - PAIN IN EXTREMITY [None]
  - PLATELET COUNT DECREASED [None]
  - RENAL FAILURE ACUTE [None]
  - RENAL IMPAIRMENT [None]
  - TROPONIN T INCREASED [None]
  - UNRESPONSIVE TO STIMULI [None]
